FAERS Safety Report 9101051 (Version 1)
Quarter: 2013Q1

REPORT INFORMATION
  Report Type: Spontaneous
  Country: US (occurrence: US)
  Receive Date: 20130215
  Receipt Date: 20130215
  Transmission Date: 20140127
  Serious: Yes (Death)
  Sender: FDA-Public Use
  Company Number: US-BANPHARM-20130806

PATIENT
  Age: 60 Year
  Sex: Male

DRUGS (11)
  1. DIPHENHYDRAMINE UNKNOWN PRODUCT [Suspect]
     Route: 048
  2. DIPHENHYDRAMINE AND ACETAMINOPHEN UNKNOWN PRODUCT [Suspect]
     Route: 048
  3. NORTRIPTYLINE [Suspect]
     Route: 048
  4. FEXOFENADINE [Suspect]
     Route: 048
  5. SALICYLATE [Suspect]
     Route: 048
  6. UNKNOWN DRUG [Suspect]
     Route: 048
  7. ATORVASTATIN [Suspect]
     Route: 048
  8. CLOPIDOGREL [Suspect]
     Route: 048
  9. METOPROLOL [Suspect]
     Route: 048
  10. AMLODIPINE/OLMESARTAN MEDOXOMIL [Suspect]
     Route: 048
  11. DOXYLAMINE [Suspect]
     Route: 048

REACTIONS (4)
  - Cardio-respiratory arrest [Fatal]
  - Completed suicide [Fatal]
  - Cardiac arrest [None]
  - Respiratory arrest [None]
